FAERS Safety Report 24922976 (Version 3)
Quarter: 2025Q2

REPORT INFORMATION
  Report Type: Report from Study
  Country: US (occurrence: US)
  Receive Date: 20250204
  Receipt Date: 20250521
  Transmission Date: 20250717
  Serious: Yes (Hospitalization)
  Sender: ABBVIE
  Company Number: US-ABBVIE-6116951

PATIENT
  Sex: Male
  Weight: 112 kg

DRUGS (1)
  1. VENCLEXTA [Suspect]
     Active Substance: VENETOCLAX
     Indication: Product used for unknown indication
     Dosage: PILLS
     Route: 048
     Dates: start: 2023, end: 2023

REACTIONS (2)
  - Illness [Unknown]
  - Fatigue [Unknown]
